FAERS Safety Report 7732989-7 (Version None)
Quarter: 2011Q3

REPORT INFORMATION
  Report Type: 
  Country: None (occurrence: None)
  Receive Date: 20110907
  Receipt Date: 20110901
  Transmission Date: 20111222
  Serious: Yes (Hospitalization, Disabling, Other)
  Sender: FDA-Public Use
  Company Number: PHEH2010US01705

PATIENT
  Sex: Female

DRUGS (10)
  1. COUMADIN [Concomitant]
  2. COLACE [Concomitant]
  3. AREDIA [Suspect]
  4. ATENOLOL [Concomitant]
  5. ZOMETA [Suspect]
  6. DECADRON [Concomitant]
  7. NORVASC [Concomitant]
  8. THALIDOMIDE [Concomitant]
     Indication: MULTIPLE MYELOMA
  9. HYDROCHLOROTHIAZIDE [Concomitant]
  10. ZESTRIL [Concomitant]

REACTIONS (13)
  - FATIGUE [None]
  - INJURY [None]
  - ANHEDONIA [None]
  - PNEUMONIA [None]
  - OSTEONECROSIS OF JAW [None]
  - NECK PAIN [None]
  - INTERVERTEBRAL DISC PROTRUSION [None]
  - INTERVERTEBRAL DISC COMPRESSION [None]
  - OROPHARYNGEAL PAIN [None]
  - ANXIETY [None]
  - PAIN [None]
  - DISABILITY [None]
  - TENDERNESS [None]
